FAERS Safety Report 7677832-X (Version None)
Quarter: 2011Q3

REPORT INFORMATION
  Report Type: 
  Country: None (occurrence: None)
  Receive Date: 20110811
  Receipt Date: 20110803
  Transmission Date: 20111222
  Serious: Yes (Other)
  Sender: FDA-Public Use
  Company Number: US-JNJFOC-200302-0441

PATIENT
  Age: 24 Year
  Sex: Female
  Weight: 59 kg

DRUGS (6)
  1. TOCOPHEROL CONCENTRATE CAP [Concomitant]
  2. MULTI-VITAMINS [Concomitant]
  3. TRAZODONE HCL [Concomitant]
  4. BENADRYL [Suspect]
     Dosage: DAILY DOSE TEXT: UNSPECIFIED
     Route: 048
     Dates: start: 20030131
  5. SERTRALINE HYDROCHLORIDE [Suspect]
     Indication: DEPRESSION
     Dosage: DAILY DOSE TEXT: 25 MG DAILY
     Route: 048
     Dates: start: 20030125, end: 20030130
  6. BENADRYL [Suspect]
     Indication: URTICARIA
     Dosage: DAILY DOSE TEXT: UNSPECIFIED
     Route: 048
     Dates: start: 20030202

REACTIONS (2)
  - MYALGIA [None]
  - ANAPHYLACTIC REACTION [None]
